FAERS Safety Report 17818623 (Version 6)
Quarter: 2020Q4

REPORT INFORMATION
  Report Type: Report from Study
  Country: US (occurrence: US)
  Receive Date: 20200522
  Receipt Date: 20201204
  Transmission Date: 20210113
  Serious: Yes (Life-Threatening, Hospitalization)
  Sender: FDA-Public Use
  Company Number: US-BIOGEN-2020BI00875562

PATIENT
  Age: 65 Year
  Sex: Female

DRUGS (2)
  1. TYSABRI [Suspect]
     Active Substance: NATALIZUMAB
     Indication: MULTIPLE SCLEROSIS
     Route: 042
     Dates: start: 20120516, end: 201903
  2. TYSABRI [Suspect]
     Active Substance: NATALIZUMAB
     Route: 065
     Dates: start: 20120516

REACTIONS (11)
  - Multiple sclerosis [Unknown]
  - Urinary incontinence [Unknown]
  - Headache [Unknown]
  - Colon cancer [Not Recovered/Not Resolved]
  - Inflammation [Unknown]
  - Vaccination complication [Unknown]
  - Large intestinal obstruction [Unknown]
  - Migraine [Unknown]
  - Malignant polyp [Not Recovered/Not Resolved]
  - Drug hypersensitivity [Unknown]
  - Anal incontinence [Unknown]

NARRATIVE: CASE EVENT DATE: 201909
